FAERS Safety Report 15727738 (Version 1)
Quarter: 2018Q4

REPORT INFORMATION
  Report Type: Spontaneous
  Country: US (occurrence: US)
  Receive Date: 20181217
  Receipt Date: 20181217
  Transmission Date: 20190205
  Serious: No
  Sender: FDA-Public Use
  Company Number: US-PFIZER INC-2018511247

PATIENT
  Age: 88 Year
  Sex: Female

DRUGS (2)
  1. OXAPROZIN. [Suspect]
     Active Substance: OXAPROZIN
     Dosage: UNK
  2. GEMFIBROZIL. [Suspect]
     Active Substance: GEMFIBROZIL
     Dosage: UNK

REACTIONS (1)
  - Drug hypersensitivity [Unknown]
